FAERS Safety Report 11868332 (Version 6)
Quarter: 2016Q3

REPORT INFORMATION
  Report Type: Report from Study
  Country: JP (occurrence: JP)
  Receive Date: 20151224
  Receipt Date: 20160705
  Transmission Date: 20161109
  Serious: Yes (Hospitalization, Other)
  Sender: FDA-Public Use
  Company Number: PHJP2015JP022537

PATIENT
  Age: 71 Year
  Sex: Female

DRUGS (10)
  1. GILENYA [Suspect]
     Active Substance: FINGOLIMOD HYDROCHLORIDE
     Indication: MULTIPLE SCLEROSIS
     Dosage: 0.5 MG, QD
     Route: 048
     Dates: start: 20130402, end: 20130414
  2. UBRETID [Concomitant]
     Active Substance: DISTIGMINE BROMIDE
     Indication: PROPHYLAXIS
     Dosage: 5 MG, UNK
     Route: 048
  3. GILENYA [Suspect]
     Active Substance: FINGOLIMOD HYDROCHLORIDE
     Dosage: 0.5 MG, ONCE 5 DAYS
     Route: 048
     Dates: start: 20140122, end: 20140303
  4. CINAL [Concomitant]
     Active Substance: ASCORBIC ACID\CALCIUM PANTOTHENATE
     Indication: PROPHYLAXIS
     Dosage: 6 DF, UNK
     Route: 048
  5. MAGLAX [Concomitant]
     Active Substance: MAGNESIUM OXIDE
     Indication: PROPHYLAXIS
     Dosage: 500 MG, UNK
     Route: 048
  6. EBRANTIL [Concomitant]
     Active Substance: URAPIDIL
     Indication: PROPHYLAXIS
     Dosage: 150 MG, UNK
     Route: 048
  7. JUVELA N [Concomitant]
     Active Substance: TOCOPHERYL NICOTINATE, D-.ALPHA.
     Indication: PROPHYLAXIS
     Dosage: 300 MG, UNK
     Route: 048
  8. BONALON [Concomitant]
     Active Substance: ALENDRONATE SODIUM
     Indication: PROPHYLAXIS
     Dosage: 3.5 MG, QW
     Route: 048
  9. GILENYA [Suspect]
     Active Substance: FINGOLIMOD HYDROCHLORIDE
     Dosage: 0.5 MG, QOD
     Route: 048
     Dates: start: 20130415, end: 20131014
  10. GILENYA [Suspect]
     Active Substance: FINGOLIMOD HYDROCHLORIDE
     Dosage: 0.5 MG, QD
     Route: 048
     Dates: start: 20131015, end: 20140110

REACTIONS (18)
  - Liver disorder [Recovered/Resolved]
  - Decreased appetite [Recovering/Resolving]
  - Incoherent [Recovered/Resolved]
  - Lymphocyte count decreased [Recovering/Resolving]
  - Blood alkaline phosphatase increased [Unknown]
  - Gamma-glutamyltransferase increased [Unknown]
  - Prescribed underdose [Unknown]
  - Alanine aminotransferase increased [Unknown]
  - Aspartate aminotransferase increased [Unknown]
  - Multiple sclerosis relapse [Recovered/Resolved]
  - Dysarthria [Recovered/Resolved]
  - Platelet count decreased [Recovered/Resolved]
  - White blood cell count decreased [Recovering/Resolving]
  - Mental status changes [Recovering/Resolving]
  - Liver disorder [Recovered/Resolved]
  - Somnolence [Recovered/Resolved]
  - Somnolence [Recovered/Resolved]
  - Fatigue [Recovering/Resolving]

NARRATIVE: CASE EVENT DATE: 20130415
